FAERS Safety Report 16482974 (Version 3)
Quarter: 2021Q3

REPORT INFORMATION
  Report Type: Spontaneous
  Country: NL (occurrence: NL)
  Receive Date: 20190627
  Receipt Date: 20210924
  Transmission Date: 20211014
  Serious: Yes (Hospitalization)
  Sender: FDA-Public Use
  Company Number: NL-TEVA-2019-NL-1069918

PATIENT
  Age: 77 Year
  Sex: Female
  Weight: 75 kg

DRUGS (16)
  1. OXAZEPAM. [Concomitant]
     Active Substance: OXAZEPAM
     Dosage: 2?3D 10MG, THERAPY START AND END DATE: ASKU
  2. APIXABAN [Concomitant]
     Active Substance: APIXABAN
     Dosage: 2 D 5 MG, THERAPY START AND END DATE: ASKU
  3. ROSUVASTATINE [Concomitant]
     Active Substance: ROSUVASTATIN
     Dosage: 1 D 20 MG, THERAPY START AND END DATE: ASKU
  4. BECLOMETASON/FORMOTEROL 100/6UG [Concomitant]
     Dosage: 2D1, THERAPY START AND END DATE: ASKU
  5. CALCIUM/VIT D 1D 2,5G/800IE [Concomitant]
     Dosage: THERAPY START AND END DATE: ASKU
  6. ACETYLSALICYLZUUR [Concomitant]
     Active Substance: ASPIRIN
     Dosage: 1 D 80 MG, THERAPY START AND END DATE: ASKU
  7. PANTOPRAZOL MAAGSAPRESISTENTE TABLET, 40 MG (MILLIGRAM) [Suspect]
     Active Substance: PANTOPRAZOLE SODIUM
     Indication: GASTRIC DISORDER
     Dosage: 2D1T, THERAPY END DATE: ASKU
     Route: 065
     Dates: start: 2019
  8. AMIODARON [Concomitant]
     Active Substance: AMIODARONE
     Dosage: 1 D 200 MG, THERAPY START AND END DATE: ASKU
  9. LANTUS [Concomitant]
     Active Substance: INSULIN GLARGINE
     Dosage: 1 D 20 IU, THERAPY START AND END DATE: ASKU
  10. FUROSEMIDE. [Concomitant]
     Active Substance: FUROSEMIDE
     Dosage: 1 D 40 MG, THERAPY START AND END DATE: ASKU
  11. METOPROLOL. [Concomitant]
     Active Substance: METOPROLOL
     Dosage: 1D 50MG, THERAPY START AND END DATE: ASKU
  12. SPIRONOLACTON [Concomitant]
     Active Substance: SPIRONOLACTONE
     Dosage: 1 D 25 MG, THERAPY START AND END DATE: ASKU
  13. GLIMEPIRIDE. [Concomitant]
     Active Substance: GLIMEPIRIDE
     Dosage: 1 D 2T 3 MG, THERAPY START AND END DATE: ASKU
  14. FERROFUMARAAT [Concomitant]
     Active Substance: FERROUS FUMARATE
     Dosage: 1 D 200 MG, THERAPY START AND END DATE: ASKU
  15. ZOPICLON [Concomitant]
     Active Substance: ZOPICLONE
     Dosage: 1 D 7.5 MG, THERAPY START AND END DATE: ASKU
  16. ENALAPRIL [Concomitant]
     Active Substance: ENALAPRIL
     Dosage: 1 D 20 MG, THERAPY START AND END DATE: ASKU

REACTIONS (3)
  - Hypocalcaemia [Recovering/Resolving]
  - Hypokalaemia [Recovering/Resolving]
  - Hypomagnesaemia [Recovering/Resolving]

NARRATIVE: CASE EVENT DATE: 20190605
